FAERS Safety Report 22288544 (Version 1)
Quarter: 2023Q2

REPORT INFORMATION
  Report Type: Spontaneous
  Country: US (occurrence: None)
  Receive Date: 20230504
  Receipt Date: 20230504
  Transmission Date: 20230721
  Serious: No
  Sender: FDA-Public Use
  Company Number: None

PATIENT
  Age: 79 Year
  Sex: Female
  Weight: 63.5 kg

DRUGS (2)
  1. COSENTYX [Suspect]
     Active Substance: SECUKINUMAB
     Indication: Psoriasis
     Dosage: FREQUENCY : MONTHLY;?
     Route: 058
     Dates: start: 202212
  2. COSENTYX [Suspect]
     Active Substance: SECUKINUMAB
     Indication: Senile osteoporosis

REACTIONS (5)
  - Gingivitis [None]
  - Oesophageal disorder [None]
  - Dysphagia [None]
  - Gastric disorder [None]
  - Gastrooesophageal reflux disease [None]
